FAERS Safety Report 23124034 (Version 1)
Quarter: 2023Q4

REPORT INFORMATION
  Report Type: Spontaneous
  Country: US (occurrence: US)
  Receive Date: 20231030
  Receipt Date: 20231030
  Transmission Date: 20240109
  Serious: Yes (Life-Threatening, Hospitalization)
  Sender: FDA-Public Use
  Company Number: US-MYLANLABS-2023M1112382

PATIENT
  Age: 65 Year
  Sex: Male

DRUGS (4)
  1. PREDNISONE [Suspect]
     Active Substance: PREDNISONE
     Indication: Eosinophilic pneumonia acute
     Dosage: 60 MILLIGRAM
     Route: 065
  2. LENALIDOMIDE [Concomitant]
     Active Substance: LENALIDOMIDE
     Indication: Plasma cell myeloma
     Dosage: UNK
     Route: 065
  3. DARATUMUMAB [Concomitant]
     Active Substance: DARATUMUMAB
     Indication: Plasma cell myeloma
     Dosage: UNK
     Route: 065
  4. DEXAMETHASONE [Concomitant]
     Active Substance: DEXAMETHASONE
     Indication: Plasma cell myeloma
     Dosage: UNK
     Route: 065

REACTIONS (2)
  - Drug ineffective [Unknown]
  - Acute respiratory distress syndrome [Not Recovered/Not Resolved]
